FAERS Safety Report 25576602 (Version 1)
Quarter: 2025Q3

REPORT INFORMATION
  Report Type: Spontaneous
  Country: US (occurrence: US)
  Receive Date: 20250718
  Receipt Date: 20250718
  Transmission Date: 20251020
  Serious: Yes (Other)
  Sender: MYLAN
  Company Number: US-MYLANLABS-2025M1059133

PATIENT
  Age: 42 Year
  Sex: Female

DRUGS (28)
  1. BUPRENORPHINE\NALOXONE [Interacting]
     Active Substance: BUPRENORPHINE\NALOXONE
     Indication: Bipolar disorder
     Dosage: 18 MILLIGRAM, QD (THERAPY HELD. LATER, RESUMED)
  2. BUPRENORPHINE\NALOXONE [Interacting]
     Active Substance: BUPRENORPHINE\NALOXONE
     Dosage: 18 MILLIGRAM, QD (THERAPY HELD. LATER, RESUMED)
  3. BUPRENORPHINE\NALOXONE [Interacting]
     Active Substance: BUPRENORPHINE\NALOXONE
     Dosage: 18 MILLIGRAM, QD (THERAPY HELD. LATER, RESUMED)
     Route: 065
  4. BUPRENORPHINE\NALOXONE [Interacting]
     Active Substance: BUPRENORPHINE\NALOXONE
     Dosage: 18 MILLIGRAM, QD (THERAPY HELD. LATER, RESUMED)
     Route: 065
  5. BUPRENORPHINE\NALOXONE [Interacting]
     Active Substance: BUPRENORPHINE\NALOXONE
     Dosage: 2 MILLIGRAM, QD (DOSE WAS TAPERED)
  6. BUPRENORPHINE\NALOXONE [Interacting]
     Active Substance: BUPRENORPHINE\NALOXONE
     Dosage: 2 MILLIGRAM, QD (DOSE WAS TAPERED)
  7. BUPRENORPHINE\NALOXONE [Interacting]
     Active Substance: BUPRENORPHINE\NALOXONE
     Dosage: 2 MILLIGRAM, QD (DOSE WAS TAPERED)
     Route: 065
  8. BUPRENORPHINE\NALOXONE [Interacting]
     Active Substance: BUPRENORPHINE\NALOXONE
     Dosage: 2 MILLIGRAM, QD (DOSE WAS TAPERED)
     Route: 065
  9. BUPRENORPHINE\NALOXONE [Interacting]
     Active Substance: BUPRENORPHINE\NALOXONE
  10. BUPRENORPHINE\NALOXONE [Interacting]
     Active Substance: BUPRENORPHINE\NALOXONE
     Route: 065
  11. BUPRENORPHINE\NALOXONE [Interacting]
     Active Substance: BUPRENORPHINE\NALOXONE
  12. BUPRENORPHINE\NALOXONE [Interacting]
     Active Substance: BUPRENORPHINE\NALOXONE
     Route: 065
  13. LYBALVI [Interacting]
     Active Substance: OLANZAPINE\SAMIDORPHAN L-MALATE
     Indication: Bipolar disorder
     Dosage: 10MG/10MG, QD
  14. LYBALVI [Interacting]
     Active Substance: OLANZAPINE\SAMIDORPHAN L-MALATE
     Dosage: 10MG/10MG, QD
     Route: 065
  15. LYBALVI [Interacting]
     Active Substance: OLANZAPINE\SAMIDORPHAN L-MALATE
     Dosage: 10MG/10MG, QD
     Route: 065
  16. LYBALVI [Interacting]
     Active Substance: OLANZAPINE\SAMIDORPHAN L-MALATE
     Dosage: 10MG/10MG, QD
  17. BUPROPION [Concomitant]
     Active Substance: BUPROPION
     Indication: Product used for unknown indication
     Dosage: 150 MILLIGRAM, HS (XR NIGHTLY)
  18. BUPROPION [Concomitant]
     Active Substance: BUPROPION
     Dosage: 150 MILLIGRAM, HS (XR NIGHTLY)
     Route: 065
  19. BUPROPION [Concomitant]
     Active Substance: BUPROPION
     Dosage: 150 MILLIGRAM, HS (XR NIGHTLY)
     Route: 065
  20. BUPROPION [Concomitant]
     Active Substance: BUPROPION
     Dosage: 150 MILLIGRAM, HS (XR NIGHTLY)
  21. BUSPIRONE [Concomitant]
     Active Substance: BUSPIRONE HYDROCHLORIDE
     Indication: Product used for unknown indication
     Dosage: 30 MILLIGRAM, BID
  22. BUSPIRONE [Concomitant]
     Active Substance: BUSPIRONE HYDROCHLORIDE
     Dosage: 30 MILLIGRAM, BID
     Route: 065
  23. BUSPIRONE [Concomitant]
     Active Substance: BUSPIRONE HYDROCHLORIDE
     Dosage: 30 MILLIGRAM, BID
     Route: 065
  24. BUSPIRONE [Concomitant]
     Active Substance: BUSPIRONE HYDROCHLORIDE
     Dosage: 30 MILLIGRAM, BID
  25. FENTANYL [Concomitant]
     Active Substance: FENTANYL
     Indication: Product used for unknown indication
     Dosage: 1 DOSAGE FORM, QD
  26. FENTANYL [Concomitant]
     Active Substance: FENTANYL
     Dosage: 1 DOSAGE FORM, QD
     Route: 065
  27. FENTANYL [Concomitant]
     Active Substance: FENTANYL
     Dosage: 1 DOSAGE FORM, QD
     Route: 065
  28. FENTANYL [Concomitant]
     Active Substance: FENTANYL
     Dosage: 1 DOSAGE FORM, QD

REACTIONS (3)
  - Drug ineffective [Unknown]
  - Drug withdrawal syndrome [Recovering/Resolving]
  - Drug interaction [Unknown]
